FAERS Safety Report 17453038 (Version 2)
Quarter: 2024Q1

REPORT INFORMATION
  Report Type: Spontaneous
  Country: JP (occurrence: JP)
  Receive Date: 20200224
  Receipt Date: 20240201
  Transmission Date: 20240410
  Serious: Yes (Death, Other)
  Sender: FDA-Public Use
  Company Number: JP-SANOFI-2017SA141693

PATIENT
  Age: 15 Month
  Sex: Female
  Weight: 5 kg

DRUGS (19)
  1. SABRIL [Suspect]
     Active Substance: VIGABATRIN
     Indication: Infantile spasms
     Dosage: 25 MG/KG, BID
     Route: 048
     Dates: start: 20170428, end: 20170501
  2. SABRIL [Suspect]
     Active Substance: VIGABATRIN
     Dosage: 50 MG/KG, BID
     Route: 048
     Dates: start: 20170502, end: 20170504
  3. SABRIL [Suspect]
     Active Substance: VIGABATRIN
     Dosage: 75 MG/KG, BID
     Route: 048
     Dates: start: 20170505, end: 20170615
  4. SABRIL [Suspect]
     Active Substance: VIGABATRIN
     Dosage: 75 MG/KG, BID
     Route: 048
     Dates: start: 20171023, end: 20180319
  5. SABRIL [Suspect]
     Active Substance: VIGABATRIN
     Dosage: 25 MG/KG, BID
     Route: 048
     Dates: start: 20180725, end: 20180727
  6. SABRIL [Suspect]
     Active Substance: VIGABATRIN
     Dosage: 50 MG/KG, BID
     Route: 048
     Dates: start: 20180728, end: 20180730
  7. SABRIL [Suspect]
     Active Substance: VIGABATRIN
     Dosage: 75 MG/KG, BID
     Route: 048
     Dates: start: 20180731, end: 20191113
  8. VALPROATE SODIUM [Concomitant]
     Active Substance: VALPROATE SODIUM
     Indication: Product used for unknown indication
     Dosage: 170 MG, QD
     Route: 048
  9. VALPROATE SODIUM [Concomitant]
     Active Substance: VALPROATE SODIUM
     Dosage: 120 MG, QD
     Route: 048
     Dates: start: 20170526, end: 20170615
  10. LEVETIRACETAM [Concomitant]
     Active Substance: LEVETIRACETAM
     Indication: Infantile spasms
     Dosage: 100 MG, QD
     Route: 048
     Dates: start: 20170526, end: 20170615
  11. LEVETIRACETAM [Concomitant]
     Active Substance: LEVETIRACETAM
     Dosage: DAILY DOSE: 640 MG
     Route: 048
  12. LEVETIRACETAM [Concomitant]
     Active Substance: LEVETIRACETAM
     Dosage: DAILY DOSE: 420 MG
     Route: 048
  13. HAPYTON [Concomitant]
     Indication: Product used for unknown indication
     Dosage: 30 MG, QD
     Route: 048
     Dates: start: 20170726, end: 20170806
  14. ASPIRIN [Concomitant]
     Active Substance: ASPIRIN
     Indication: Heart disease congenital
     Dosage: 20 MG, QD
     Route: 048
     Dates: end: 20191113
  15. TOPIRAMATE [Concomitant]
     Active Substance: TOPIRAMATE
     Indication: Product used for unknown indication
     Dosage: 45 MG, QD
     Route: 048
  16. TORSEMIDE [Concomitant]
     Active Substance: TORSEMIDE
     Indication: Product used for unknown indication
     Dosage: 0.8 MG
     Route: 048
  17. VYNDAQEL [Concomitant]
     Active Substance: TAFAMIDIS MEGLUMINE
     Indication: Product used for unknown indication
     Dosage: 120 MG, QD
     Route: 048
  18. NILVADIPINE [Concomitant]
     Active Substance: NILVADIPINE
     Indication: Product used for unknown indication
     Dosage: 3 DF, QD
     Route: 048
  19. ADCIRCA [Concomitant]
     Active Substance: TADALAFIL
     Indication: Heart disease congenital
     Dosage: 5 MG, QD
     Route: 048
     Dates: start: 20171023, end: 20191113

REACTIONS (2)
  - Death [Fatal]
  - Retinal function test abnormal [Not Recovered/Not Resolved]

NARRATIVE: CASE EVENT DATE: 20170725
